FAERS Safety Report 16624373 (Version 1)
Quarter: 2019Q3

REPORT INFORMATION
  Report Type: Spontaneous
  Country: PL (occurrence: PL)
  Receive Date: 20190724
  Receipt Date: 20190724
  Transmission Date: 20191004
  Serious: Yes (Life-Threatening)
  Sender: FDA-Public Use
  Company Number: PHHY2019PL170678

PATIENT
  Age: 57 Year
  Sex: Female
  Weight: 67 kg

DRUGS (1)
  1. CARBOPLATIN. [Suspect]
     Active Substance: CARBOPLATIN
     Indication: CERVIX CARCINOMA
     Dosage: 350 MG/M2, UNK
     Route: 042

REACTIONS (4)
  - Asphyxia [Unknown]
  - Depressed level of consciousness [Unknown]
  - Hypersensitivity [Unknown]
  - Blood pressure decreased [Unknown]

NARRATIVE: CASE EVENT DATE: 20151127
